FAERS Safety Report 8400917-7 (Version None)
Quarter: 2012Q2

REPORT INFORMATION
  Report Type: 
  Country: None (occurrence: None)
  Receive Date: 20120601
  Receipt Date: 20120521
  Transmission Date: 20120825
  Serious: Yes (Other)
  Sender: FDA-Public Use
  Company Number: US-AMGEN-USASP2012032277

PATIENT
  Age: 80 Year
  Sex: Female
  Weight: 66.2 kg

DRUGS (1)
  1. NPLATE [Suspect]
     Indication: IDIOPATHIC THROMBOCYTOPENIC PURPURA
     Dates: start: 20110101

REACTIONS (4)
  - PNEUMONIA [None]
  - LUNG DISORDER [None]
  - INFECTION [None]
  - PLATELET COUNT DECREASED [None]
